FAERS Safety Report 12115595 (Version 1)
Quarter: 2016Q1

REPORT INFORMATION
  Report Type: Spontaneous
  Country: US (occurrence: US)
  Receive Date: 20160225
  Receipt Date: 20160225
  Transmission Date: 20160526
  Serious: No
  Sender: FDA-Public Use
  Company Number: US-MYLANLABS-2015M1037746

PATIENT
  Sex: Male
  Weight: 72.57 kg

DRUGS (1)
  1. AMNESTEEM [Suspect]
     Active Substance: ISOTRETINOIN
     Indication: ACNE
     Dosage: 40 MG, QD
     Route: 048
     Dates: start: 201502, end: 201508

REACTIONS (5)
  - Abnormal behaviour [Recovered/Resolved]
  - Decreased interest [Recovered/Resolved]
  - Weight decreased [Recovered/Resolved]
  - Unevaluable event [Recovered/Resolved]
  - Decreased appetite [Recovered/Resolved]

NARRATIVE: CASE EVENT DATE: 2015
